FAERS Safety Report 6299572-4 (Version None)
Quarter: 2009Q3

REPORT INFORMATION
  Report Type: 
  Country: None (occurrence: None)
  Receive Date: 20090805
  Receipt Date: 20090805
  Transmission Date: 20100115
  Serious: Yes (Hospitalization)
  Sender: FDA-Public Use
  Company Number: None

PATIENT
  Age: 37 Year
  Sex: Female
  Weight: 90.7194 kg

DRUGS (1)
  1. THYROID TAB [Suspect]
     Indication: HYPOTHYROIDISM
     Dosage: 30MG 2 TIMES PER DAY PO
     Route: 048
     Dates: start: 20070101, end: 20090804

REACTIONS (5)
  - DRUG INEFFECTIVE [None]
  - DYSPNOEA [None]
  - ORTHOSTATIC HYPOTENSION [None]
  - PRODUCT SOLUBILITY ABNORMAL [None]
  - PRODUCT TASTE ABNORMAL [None]
